FAERS Safety Report 8283606-1 (Version None)
Quarter: 2012Q2

REPORT INFORMATION
  Report Type: 
  Country: None (occurrence: None)
  Receive Date: 20120413
  Receipt Date: 20120406
  Transmission Date: 20120825
  Serious: Yes (Life-Threatening, Hospitalization, Other)
  Sender: FDA-Public Use
  Company Number: JP-NAPPMUNDI-MAG-2012-0002123

PATIENT
  Age: 86 Year
  Sex: Female

DRUGS (3)
  1. BUPRENORPHINE [Suspect]
     Dosage: 5 MCG, Q1H
     Route: 062
     Dates: start: 20120112, end: 20120118
  2. BUPRENORPHINE [Suspect]
     Indication: INTERVERTEBRAL DISCITIS
     Dosage: 10 MCG, Q1H
     Route: 062
     Dates: start: 20120119, end: 20120328
  3. PRIMPERAN TAB [Concomitant]
     Indication: PROPHYLAXIS OF NAUSEA AND VOMITING
     Dosage: UNK
     Route: 048
     Dates: start: 20120112

REACTIONS (7)
  - VOMITING [None]
  - ABDOMINAL PAIN [None]
  - URINARY RETENTION [None]
  - CONSTIPATION [None]
  - OCCULT BLOOD [None]
  - DIARRHOEA [None]
  - BACK PAIN [None]
